FAERS Safety Report 5747821-0 (Version None)
Quarter: 2008Q2

REPORT INFORMATION
  Report Type: 
  Country: None (occurrence: None)
  Receive Date: 20080523
  Receipt Date: 20080515
  Transmission Date: 20081010
  Serious: Yes (Hospitalization)
  Sender: FDA-Public Use
  Company Number: B0520339A

PATIENT
  Age: 70 Year
  Sex: Female
  Weight: 50.2 kg

DRUGS (5)
  1. MELPHALAN [Suspect]
     Indication: MULTIPLE MYELOMA
     Route: 048
  2. PREDNISOLONE [Suspect]
     Indication: MULTIPLE MYELOMA
     Route: 048
  3. ONCOVIN [Suspect]
     Indication: MULTIPLE MYELOMA
     Route: 042
  4. DOXORUBICIN HYDROCHLORIDE [Suspect]
     Indication: MULTIPLE MYELOMA
     Route: 042
  5. DEXAMETHASONE ACETATE [Suspect]
     Indication: MULTIPLE MYELOMA
     Route: 065

REACTIONS (22)
  - BLOOD GLUCOSE INCREASED [None]
  - C-REACTIVE PROTEIN INCREASED [None]
  - CYANOSIS [None]
  - DIABETIC KETOACIDOSIS [None]
  - EOSINOPHILIA [None]
  - EPSTEIN-BARR VIRUS INFECTION [None]
  - ERYTHEMA [None]
  - ERYTHEMA MULTIFORME [None]
  - GALLBLADDER DISORDER [None]
  - GLYCOSYLATED HAEMOGLOBIN INCREASED [None]
  - HEPATIC ENZYME INCREASED [None]
  - HEPATOMEGALY [None]
  - INSULIN C-PEPTIDE DECREASED [None]
  - LIVEDO RETICULARIS [None]
  - LIVER DISORDER [None]
  - METABOLIC ACIDOSIS [None]
  - PANCREATIC ENZYMES INCREASED [None]
  - PHARYNGEAL ERYTHEMA [None]
  - PYREXIA [None]
  - RASH [None]
  - TYPE 1 DIABETES MELLITUS [None]
  - WHITE BLOOD CELL COUNT INCREASED [None]
